FAERS Safety Report 4886966-4 (Version None)
Quarter: 2006Q1

REPORT INFORMATION
  Report Type: 
  Country: None (occurrence: None)
  Receive Date: 20060118
  Receipt Date: 20060109
  Transmission Date: 20060701
  Serious: Yes (Other)
  Sender: FDA-Public Use
  Company Number: 230149K06USA

PATIENT
  Age: 59 Year
  Sex: Female

DRUGS (6)
  1. REBIF [Suspect]
     Indication: MULTIPLE SCLEROSIS
     Dosage: 44 MCG, 3 IN 1 WEEKS, SUBCUTANEOUS
     Route: 058
     Dates: start: 20050404
  2. TOPROL-XL [Concomitant]
  3. PLAVIX [Concomitant]
  4. DIAZEPAM [Concomitant]
  5. ZOLOFT [Concomitant]
  6. HYDROCODONE-APAP (PROCET) [Concomitant]

REACTIONS (3)
  - CARDIAC DISORDER [None]
  - DYSPNOEA [None]
  - MUSCULAR WEAKNESS [None]
